FAERS Safety Report 8087970-8 (Version None)
Quarter: 2012Q1

REPORT INFORMATION
  Report Type: 
  Country: None (occurrence: None)
  Receive Date: 20120130
  Receipt Date: 20120124
  Transmission Date: 20120608
  Serious: Yes (Life-Threatening, Hospitalization)
  Sender: FDA-Public Use
  Company Number: US-ASTRAZENECA-2011SE53886

PATIENT
  Age: 50 Year
  Sex: Female

DRUGS (2)
  1. SYMBICORT [Suspect]
     Route: 055
  2. PULMICORT [Suspect]
     Route: 055

REACTIONS (6)
  - GASTROINTESTINAL DISORDER [None]
  - GASTROINTESTINAL INFECTION [None]
  - APPARENT DEATH [None]
  - CYST [None]
  - ASTHMA [None]
  - REPRODUCTIVE TRACT DISORDER [None]
